FAERS Safety Report 4768303-9 (Version None)
Quarter: 2005Q3

REPORT INFORMATION
  Report Type: 
  Country: None (occurrence: None)
  Receive Date: 20050906
  Receipt Date: 20050502
  Transmission Date: 20060218
  Serious: No
  Sender: FDA-Public Use
  Company Number: 2005-BP-06554BP

PATIENT
  Age: 46 Year
  Sex: Female
  Weight: 72.6 kg

DRUGS (1)
  1. SPIRIVA [Suspect]
     Indication: CHRONIC OBSTRUCTIVE PULMONARY DISEASE
     Dosage: 18 MCG (18 MCG, 1 CAPSULE A DAY), IH
     Route: 055
     Dates: end: 20050414

REACTIONS (1)
  - PARAESTHESIA [None]
